FAERS Safety Report 25259214 (Version 1)
Quarter: 2025Q2

REPORT INFORMATION
  Report Type: Spontaneous
  Country: US (occurrence: None)
  Receive Date: 20250501
  Receipt Date: 20250501
  Transmission Date: 20250717
  Serious: Yes (Hospitalization)
  Sender: FDA-CTU
  Company Number: None

PATIENT
  Age: 54 Year
  Sex: Male
  Weight: 97.7 kg

DRUGS (1)
  1. XELODA [Suspect]
     Active Substance: CAPECITABINE

REACTIONS (7)
  - Diarrhoea [None]
  - Drug ineffective [None]
  - Nausea [None]
  - Vomiting [None]
  - Proctitis [None]
  - Chills [None]
  - Febrile neutropenia [None]

NARRATIVE: CASE EVENT DATE: 20250429
